FAERS Safety Report 7090305-0 (Version None)
Quarter: 2010Q4

REPORT INFORMATION
  Report Type: 
  Country: None (occurrence: None)
  Receive Date: 20101109
  Receipt Date: 20101026
  Transmission Date: 20110411
  Serious: Yes (Other)
  Sender: FDA-Public Use
  Company Number: US-JNJFOC-20101101666

PATIENT
  Age: 41 Year
  Sex: Female
  Weight: 102.06 kg

DRUGS (4)
  1. TYLENOL COLD HEAD CONGESTION DAYTIME COOL BURST [Suspect]
     Indication: OROPHARYNGEAL PAIN
     Route: 048
  2. TYLENOL COLD HEAD CONGESTION DAYTIME COOL BURST [Suspect]
     Indication: COUGH
     Route: 048
  3. TYLENOL COLD HEAD CONGESTION DAYTIME COOL BURST [Suspect]
     Indication: RHINORRHOEA
     Route: 048
  4. TYLENOL COLD HEAD CONGESTION DAYTIME COOL BURST [Suspect]
     Indication: NASOPHARYNGITIS
     Route: 048

REACTIONS (3)
  - COUGH [None]
  - DYSPNOEA [None]
  - WHEEZING [None]
